FAERS Safety Report 5620462-1 (Version None)
Quarter: 2008Q1

REPORT INFORMATION
  Report Type: 
  Country: None (occurrence: None)
  Receive Date: 20080208
  Receipt Date: 20080131
  Transmission Date: 20080703
  Serious: Yes (Life-Threatening, Hospitalization)
  Sender: FDA-Public Use
  Company Number: US-BOEHRINGER INGELHEIM GMBH, GERMANY-2008-DE-00662GD

PATIENT
  Sex: Female

DRUGS (13)
  1. SERTRALINE [Suspect]
     Indication: DEPRESSION
  2. TRAZODONE HCL [Suspect]
  3. TRAZODONE HCL [Suspect]
  4. MORPHINE [Suspect]
     Indication: PAIN
  5. MORPHINE [Suspect]
     Indication: MUSCLE SPASMS
  6. CLONIDINE [Suspect]
  7. DIAZEPAM [Suspect]
  8. FLUTICASONE PROPIONATE [Suspect]
     Route: 055
  9. METAXALONE [Suspect]
  10. OXYCODONE HCL [Suspect]
     Indication: PAIN
     Dosage: 10 MG UP TO 100 MG
  11. BACLOFEN [Suspect]
  12. OXYBUTYNIN CHLORIDE [Suspect]
  13. PREMARIN [Suspect]

REACTIONS (6)
  - ACCIDENTAL OVERDOSE [None]
  - MENTAL STATUS CHANGES [None]
  - OVERDOSE [None]
  - SOMNOLENCE [None]
  - SUBSTANCE ABUSE [None]
  - SUICIDAL IDEATION [None]
